FAERS Safety Report 7759648-9 (Version None)
Quarter: 2011Q3

REPORT INFORMATION
  Report Type: 
  Country: None (occurrence: None)
  Receive Date: 20110915
  Receipt Date: 20110830
  Transmission Date: 20111222
  Serious: Yes (Death, Hospitalization)
  Sender: FDA-Public Use
  Company Number: 2011MA012742

PATIENT
  Age: 3 Year
  Sex: Female

DRUGS (13)
  1. SULFONAMIDE (NO PREF. NAME) [Suspect]
     Indication: PNEUMOCYSTIS JIROVECI PNEUMONIA
     Dosage: 5MG/KG;BID 3 DAYS/WEEK;
  2. OXALIPLATIN [Suspect]
     Indication: NEUROBLASTOMA
     Dosage: 85 MG/M2/2H; IV
     Route: 042
  3. DIMENHYDRINATE [Suspect]
     Indication: PROPHYLAXIS OF NAUSEA AND VOMITING
     Dosage: 2 MG/KG PER DOSE; UIV
     Route: 042
  4. AMPHOTERICIN B [Suspect]
     Indication: FUNGAL INFECTION
     Dosage: 4 X2 ML/D; PO
     Route: 048
  5. SODIUM CHLORIDE 0.9% [Suspect]
     Indication: PROPHYLAXIS
     Dosage: .45 %, IV
     Route: 042
  6. IRINOTECAN HCL [Suspect]
     Indication: NEUROBLASTOMA
     Dosage: 175 MG/M2/2H; IV
     Route: 042
  7. ONDANSETRON [Suspect]
     Dosage: 5 MG/M2; IV
     Route: 042
  8. GEMCITABINE HYDROCHLORIDE [Suspect]
     Indication: NEUROBLASTOMA
     Dosage: 1000 MG/M2/0.5H; IV
     Route: 042
  9. TROPISETRON HYDROCHLORIDE (TROPISETRON HYDROCHLORIDE) [Suspect]
     Indication: PROPHYLAXIS OF NAUSEA AND VOMITING
     Dosage: 0.2 MG/KG; IV
     Route: 042
  10. LOPERAMIDE [Suspect]
     Indication: CHOLINERGIC SYNDROME
     Dosage: 2 MG; PO
     Route: 048
  11. LOPERAMIDE [Suspect]
     Indication: DIARRHOEA
     Dosage: 2 MG; PO
     Route: 048
  12. TRIMETHOPRIM [Suspect]
     Indication: PNEUMOCYSTIS JIROVECI PNEUMONIA
     Dosage: 5 MG/KG;BID 3/DAYS/WEEK;
  13. DEXTROSE 5% [Suspect]
     Dosage: 5 % 3L/M2/D; IV
     Route: 042

REACTIONS (4)
  - METASTASES TO BONE [None]
  - VOMITING [None]
  - NAUSEA [None]
  - METASTASES TO LIVER [None]
